FAERS Safety Report 24343312 (Version 2)
Quarter: 2024Q4

REPORT INFORMATION
  Report Type: Spontaneous
  Country: CA (occurrence: CA)
  Receive Date: 20240920
  Receipt Date: 20241115
  Transmission Date: 20250115
  Serious: Yes (Other)
  Sender: PFIZER
  Company Number: CA-PFIZER INC-202300405697

PATIENT
  Age: 31 Year
  Sex: Female

DRUGS (7)
  1. ABRILADA [Suspect]
     Active Substance: ADALIMUMAB-AFZB
     Indication: Juvenile idiopathic arthritis
     Dosage: 40 MG, EVERY OTHER WEEK, PREFILLED PEN
     Route: 058
     Dates: start: 20231130
  2. ABRILADA [Suspect]
     Active Substance: ADALIMUMAB-AFZB
     Dosage: 40 MG, WEEKLY
     Route: 058
     Dates: start: 2023
  3. ABRILADA [Suspect]
     Active Substance: ADALIMUMAB-AFZB
     Dosage: 40 MG, EVERY 2 WEEK
     Route: 058
     Dates: start: 2024
  4. ERELZI [Concomitant]
     Active Substance: ETANERCEPT-SZZS
     Dosage: 1 DF
  5. FOLIC ACID [Concomitant]
     Active Substance: FOLIC ACID
     Dosage: 1 DF
  6. METHOTREXATE [Concomitant]
     Active Substance: METHOTREXATE
     Dosage: 1 DF
  7. PANTOPRAZOLE [Concomitant]
     Active Substance: PANTOPRAZOLE
     Dosage: UNK

REACTIONS (5)
  - Cervical polyp [Unknown]
  - Condition aggravated [Not Recovered/Not Resolved]
  - Vomiting [Not Recovered/Not Resolved]
  - Nerve injury [Unknown]
  - Off label use [Unknown]

NARRATIVE: CASE EVENT DATE: 20230101
